FAERS Safety Report 7709270-5 (Version None)
Quarter: 2011Q3

REPORT INFORMATION
  Report Type: 
  Country: None (occurrence: None)
  Receive Date: 20110825
  Receipt Date: 20110822
  Transmission Date: 20111222
  Serious: Yes (Life-Threatening)
  Sender: FDA-Public Use
  Company Number: PHHY2011BR31228

PATIENT
  Sex: Female

DRUGS (7)
  1. LOSARTAN POTASSIUM [Concomitant]
     Dosage: 50 MG, 1 TABLET, DAILY
     Dates: start: 20110101, end: 20110406
  2. FUROSEMIDE [Concomitant]
     Dosage: 40 MG, UNK
  3. CARVEDILOL [Concomitant]
  4. ASPIRIN [Concomitant]
  5. DIOVAN [Suspect]
     Dosage: 1 DF (80 MG VALSARTAN, DAILY)
     Route: 048
     Dates: end: 20100101
  6. AMIODARONE HCL [Concomitant]
  7. DIOVAN [Suspect]
     Indication: CARDIOMYOPATHY
     Dosage: 1 DF (80 MG VALSARTAN, DAILY)
     Route: 048
     Dates: end: 20100101

REACTIONS (3)
  - PRODUCT SUBSTITUTION ISSUE [None]
  - MALAISE [None]
  - FATIGUE [None]
